FAERS Safety Report 6490306-7 (Version None)
Quarter: 2009Q4

REPORT INFORMATION
  Report Type: 
  Country: None (occurrence: None)
  Receive Date: 20091210
  Receipt Date: 20091210
  Transmission Date: 20100525
  Serious: Yes (Life-Threatening)
  Sender: FDA-Public Use
  Company Number: None

PATIENT
  Age: 43 Year
  Sex: Male
  Weight: 87 kg

DRUGS (1)
  1. ETOPOSIDE 20 MG/ ML TEVA [Suspect]
     Indication: TESTIS CANCER
     Dosage: 195 MG DAILY FOR 5 DAYS IV
     Route: 042
     Dates: start: 20090511, end: 20090717

REACTIONS (3)
  - DYSPNOEA [None]
  - NAUSEA [None]
  - VOMITING [None]
